FAERS Safety Report 17145313 (Version 4)
Quarter: 2020Q4

REPORT INFORMATION
  Report Type: Report from Study
  Country: US (occurrence: US)
  Receive Date: 20191212
  Receipt Date: 20201128
  Transmission Date: 20210113
  Serious: Yes (Hospitalization)
  Sender: FDA-Public Use
  Company Number: US-UCBSA-2019052486

PATIENT
  Age: 36 Year
  Sex: Male

DRUGS (17)
  1. LACOSAMIDE. [Suspect]
     Active Substance: LACOSAMIDE
     Indication: SEIZURE
     Dosage: 150MG (2 TABLETS AT AM AND 3 TABLETS AT PM)
     Route: 048
     Dates: start: 20200804
  2. ZOFRAN [Concomitant]
     Active Substance: ONDANSETRON HYDROCHLORIDE
     Indication: VOMITING
     Dosage: TAKE 1 TAB (4 MG TOTAL) BY MOUTH EVERY 4 HOURS AS NEEDED
     Route: 048
  3. AMBIEN [Concomitant]
     Active Substance: ZOLPIDEM TARTRATE
     Indication: PRODUCT USED FOR UNKNOWN INDICATION
     Dosage: TAKE 1 TAB (10 MG TOTAL) BY MOUTH AT BEDTIME TAKE IMMEDIATELY BEFORE BEDTIME
     Route: 048
  4. VITAMIN C [Concomitant]
     Active Substance: ASCORBIC ACID
     Indication: PRODUCT USED FOR UNKNOWN INDICATION
     Dosage: 500MG DAILY
     Route: 048
  5. ROBAXIN [Concomitant]
     Active Substance: METHOCARBAMOL
     Indication: MUSCLE SPASMS
     Dosage: TAKE 1 TAB (750 MG TOTAL) BY MOUTH EVERY 6 HOURS AS NEEDED FOR
  6. LACOSAMIDE. [Suspect]
     Active Substance: LACOSAMIDE
     Indication: EPILEPSY
     Dosage: 150MG (2 TABLETS AT AM AND 3 TABLETS AT PM)
     Dates: end: 20200731
  7. PROAIR HFA [Concomitant]
     Active Substance: ALBUTEROL SULFATE
     Indication: DYSPNOEA
     Dosage: 180 MCG (2 PUFFS TOTAL) IN LUNGS EVERY 6 HOURS AS NEEDED
  8. PROVENTIL [Concomitant]
     Active Substance: ALBUTEROL
     Indication: DYSPNOEA
     Dosage: 180 MCG (2 PUFFS TOTAL) IN LUNGS EVERY 6 HOURS AS NEEDED
  9. KLONOPIN [Concomitant]
     Active Substance: CLONAZEPAM
     Indication: PRODUCT USED FOR UNKNOWN INDICATION
     Dosage: TAKE 1 TAB (2 MG TOTAL) BY MOUTH THREE TIMES DAILY
     Route: 048
  10. BRIVIACT [Suspect]
     Active Substance: BRIVARACETAM
     Indication: PRODUCT USED FOR UNKNOWN INDICATION
     Dosage: 100 MG, 150 MILLIGRAM, 2X/DAY (BID)
     Route: 048
  11. FIORICET [Concomitant]
     Active Substance: ACETAMINOPHEN\BUTALBITAL\CAFFEINE
     Indication: PRODUCT USED FOR UNKNOWN INDICATION
     Dosage: TAKE 1 CAP BY MOUTH EVERY 4 HOURS FOR 14 DAYS
     Route: 048
  12. LACOSAMIDE. [Suspect]
     Active Substance: LACOSAMIDE
     Indication: PARTIAL SEIZURES
     Dosage: 300 MILLIGRAM, 2X/DAY (BID)
  13. VENTOLIN [Concomitant]
     Active Substance: ALBUTEROL SULFATE
     Indication: DYSPNOEA
     Dosage: 180 MCG (2 PUFFS TOTAL) IN LUNGS EVERY 6 HOURS AS NEEDED
  14. ADVIL [IBUPROFEN] [Concomitant]
     Active Substance: IBUPROFEN
     Indication: PRODUCT USED FOR UNKNOWN INDICATION
     Dosage: TAKE 4 TABS (800 MG TOTAL) BY MOUTH FOUR TIMES DALLY BEFORE MEALS AND BEDTIME
     Route: 048
  15. ZOFRAN [Concomitant]
     Active Substance: ONDANSETRON HYDROCHLORIDE
     Indication: NAUSEA
  16. MIDAZOLAM. [Concomitant]
     Active Substance: MIDAZOLAM
     Indication: SEIZURE
     Dosage: 1 SPRAY IN AFFECTED NOSTRIL AS NEEDED, MAY REPEAT X 1 INTO OPPOSITE NOSTRIL AFTER 2 HOURS(NAYZILAM)
     Route: 045
  17. OXYCODONE [Concomitant]
     Active Substance: OXYCODONE
     Indication: PRODUCT USED FOR UNKNOWN INDICATION
     Dosage: 10 MG BY ORALLY OR NG TUBE ROUTE EVERY 12 HOURS AS NEEDED
     Route: 048

REACTIONS (6)
  - Incorrect dose administered [Unknown]
  - Overdose [Unknown]
  - Product availability issue [Unknown]
  - Off label use [Unknown]
  - Hospitalisation [Unknown]
  - Therapy interrupted [Unknown]

NARRATIVE: CASE EVENT DATE: 2019
